FAERS Safety Report 9576933 (Version 1)
Quarter: 2013Q4

REPORT INFORMATION
  Report Type: Spontaneous
  Country: US (occurrence: US)
  Receive Date: 20131001
  Receipt Date: 20131001
  Transmission Date: 20140711
  Serious: No
  Sender: FDA-Public Use
  Company Number: US-AMGEN-USASP2013004969

PATIENT
  Sex: Male
  Weight: 113.38 kg

DRUGS (14)
  1. ENBREL [Suspect]
     Indication: PSORIATIC ARTHROPATHY
     Dosage: 50 MG, QWK
     Route: 058
  2. PANTOPRAZOLE [Concomitant]
     Dosage: 40 MG, UNK
  3. MS CONTIN [Concomitant]
     Dosage: 200 MG, UNK
  4. ASTEPRO [Concomitant]
     Dosage: 137 MCG, UNK
  5. AMLODIPINE [Concomitant]
     Dosage: 10 MG, UNK
  6. ZYRTEC [Concomitant]
     Dosage: 10 MG, UNK
  7. METFORMIN [Concomitant]
     Dosage: 500 MG, UNK, ER
  8. LOSARTAN/HCT [Concomitant]
     Dosage: 100-12.5, UNK
  9. OXYCODONE [Concomitant]
     Dosage: 10 MG, UNK, CR
  10. METOPROLOL [Concomitant]
     Dosage: 25 MG, UNK, ER
  11. METHOTREXATE [Concomitant]
     Dosage: 250 MG/10, UNK
  12. FOLIC ACID [Concomitant]
     Dosage: UNK
  13. FLUTICASON [Concomitant]
     Dosage: 0.05 %, UNK
  14. VIIBRYD [Concomitant]
     Dosage: 10 MG, UNK

REACTIONS (1)
  - Drug effect incomplete [Unknown]
